FAERS Safety Report 22593535 (Version 1)
Quarter: 2023Q2

REPORT INFORMATION
  Report Type: Report from Study
  Country: ES (occurrence: ES)
  Receive Date: 20230613
  Receipt Date: 20230613
  Transmission Date: 20230722
  Serious: Yes (Hospitalization)
  Sender: FDA-Public Use
  Company Number: ES-ABBVIE-4264603

PATIENT
  Age: 65 Year
  Sex: Female
  Weight: 55.5 kg

DRUGS (21)
  1. EPCORITAMAB [Suspect]
     Active Substance: EPCORITAMAB
     Indication: Diffuse large B-cell lymphoma
     Dosage: TIME INTERVAL: TOTAL: PRIMING DOSE C1, D1
     Route: 058
     Dates: start: 20221214, end: 20221214
  2. EPCORITAMAB [Suspect]
     Active Substance: EPCORITAMAB
     Indication: Diffuse large B-cell lymphoma
     Dosage: TIME INTERVAL: TOTAL: INTERMEDIATE DOSE C1, D8
     Route: 058
     Dates: start: 20221221, end: 20221221
  3. EPCORITAMAB [Suspect]
     Active Substance: EPCORITAMAB
     Indication: Diffuse large B-cell lymphoma
     Dosage: FULL DOSE
     Route: 058
     Dates: start: 20221228
  4. IBRUTINIB [Suspect]
     Active Substance: IBRUTINIB
     Indication: Diffuse large B-cell lymphoma
     Dosage: DAYS 1 TO 28 OF 28 DAY CYCLE
     Route: 048
     Dates: start: 20221214
  5. LENALIDOMIDE [Suspect]
     Active Substance: LENALIDOMIDE
     Indication: Diffuse large B-cell lymphoma
     Dosage: DAYS 1-21 OF A 28 DAY CYCLE
     Route: 048
     Dates: start: 20221214
  6. ACYCLOVIR [Concomitant]
     Active Substance: ACYCLOVIR
     Indication: Infection prophylaxis
     Route: 048
  7. ASPIRIN [Concomitant]
     Active Substance: ASPIRIN
     Indication: Thrombosis prophylaxis
     Route: 048
     Dates: start: 20221214
  8. ATORVASTATIN [Concomitant]
     Active Substance: ATORVASTATIN
     Indication: Vascular disorder prophylaxis
     Route: 048
  9. FERROUS SULFATE [Concomitant]
     Active Substance: FERROUS SULFATE
     Indication: Anaemia prophylaxis
     Route: 048
     Dates: start: 20221214
  10. FOLIC ACID [Concomitant]
     Active Substance: FOLIC ACID
     Indication: Anaemia prophylaxis
     Route: 048
  11. CALCIFEDIOL [Concomitant]
     Active Substance: CALCIFEDIOL
     Indication: Vitamin supplementation
     Route: 048
     Dates: start: 20221214
  12. OMEPRAZOLE [Concomitant]
     Active Substance: OMEPRAZOLE
     Indication: Gastrointestinal disorder prophylaxis
     Route: 048
  13. SULFAMETHOXAZOLE [Concomitant]
     Active Substance: SULFAMETHOXAZOLE
     Indication: Infection prophylaxis
     Dosage: TIME INTERVAL: 0.33333333 WEEKS
     Route: 048
     Dates: start: 20221214
  14. VENETOCLAX [Suspect]
     Active Substance: VENETOCLAX
     Indication: Diffuse large B-cell lymphoma
     Dosage: DRUG NOT ADMINISTERED.
  15. PREDNISONE [Concomitant]
     Active Substance: PREDNISONE
     Indication: Prophylaxis
     Route: 048
     Dates: start: 20221214, end: 20221217
  16. PREDNISONE [Concomitant]
     Active Substance: PREDNISONE
     Indication: Prophylaxis
     Route: 048
     Dates: start: 20221221, end: 20221224
  17. CLAVULANIC ACID [Concomitant]
     Active Substance: CLAVULANIC ACID
     Indication: Cough
     Route: 048
     Dates: start: 20221214, end: 20221220
  18. ACETAMINOPHEN [Concomitant]
     Active Substance: ACETAMINOPHEN
     Indication: Prophylactic chemotherapy
     Route: 042
     Dates: start: 20221214
  19. AMOXICILLIN [Concomitant]
     Active Substance: AMOXICILLIN
     Indication: Cough
     Route: 048
     Dates: start: 20221214, end: 20221220
  20. DEXCHLORPHENIRAMINE [Concomitant]
     Active Substance: DEXCHLORPHENIRAMINE
     Indication: Prophylactic chemotherapy
     Route: 042
     Dates: start: 20221214
  21. TRIMETROPRIM [Concomitant]
     Indication: Infection prophylaxis
     Dosage: TIME INTERVAL: 0.33333333 WEEKS
     Route: 048
     Dates: start: 20221214

REACTIONS (1)
  - Cytokine release syndrome [Recovered/Resolved]

NARRATIVE: CASE EVENT DATE: 20221229
